FAERS Safety Report 24713303 (Version 1)
Quarter: 2024Q4

REPORT INFORMATION
  Report Type: Spontaneous
  Country: US (occurrence: US)
  Receive Date: 20241209
  Receipt Date: 20241209
  Transmission Date: 20250115
  Serious: No
  Sender: REGENERON
  Company Number: US-REGENERON PHARMACEUTICALS, INC.-2024-018342

PATIENT
  Age: 80 Year
  Sex: Female

DRUGS (5)
  1. EYLEA [Suspect]
     Active Substance: AFLIBERCEPT
     Indication: Macular degeneration
     Dosage: UNK, MONTHLY, INTO LEFT EYE, FORMULATION: UNKNOWN
     Dates: start: 202310, end: 2023
  2. EYLEA [Suspect]
     Active Substance: AFLIBERCEPT
     Dosage: UNK, SEVEN WEEKS, INTO LEFT EYE, FORMULATION: UNKNOWN
     Dates: start: 2023, end: 2023
  3. EYLEA [Suspect]
     Active Substance: AFLIBERCEPT
     Dosage: UNK,SIX WEEKS INTO LEFT EYE, FORMULATION: UNKNOWN
     Dates: start: 202401
  4. ELIQUIS [Concomitant]
     Active Substance: APIXABAN
     Indication: Atrial fibrillation
  5. CLONAZEPAM [Concomitant]
     Active Substance: CLONAZEPAM
     Indication: Anxiety

REACTIONS (6)
  - Decreased appetite [Unknown]
  - Nausea [Unknown]
  - Headache [Unknown]
  - Abdominal distension [Unknown]
  - Photophobia [Unknown]
  - Eye pain [Unknown]

NARRATIVE: CASE EVENT DATE: 20231001
